APPROVED DRUG PRODUCT: TESTOSTERONE CYPIONATE
Active Ingredient: TESTOSTERONE CYPIONATE
Strength: 200MG/ML
Dosage Form/Route: INJECTABLE;INJECTION
Application: A040615 | Product #002 | TE Code: AO
Applicant: CAPLIN ONE LABS LTD
Approved: Aug 10, 2006 | RLD: No | RS: No | Type: RX